FAERS Safety Report 25196408 (Version 1)
Quarter: 2025Q2

REPORT INFORMATION
  Report Type: Spontaneous
  Country: FR (occurrence: FR)
  Receive Date: 20250415
  Receipt Date: 20250415
  Transmission Date: 20250717
  Serious: Yes (Hospitalization)
  Sender: MERCK SHARP & DOHME LLC
  Company Number: None

PATIENT
  Age: 75 Year
  Sex: Male
  Weight: 75 kg

DRUGS (8)
  1. POSACONAZOLE [Suspect]
     Active Substance: POSACONAZOLE
     Indication: Opportunistic infection prophylaxis
     Dosage: 300 MG MORNING QD
     Route: 048
     Dates: start: 20250304, end: 20250319
  2. IVOSIDENIB [Interacting]
     Active Substance: IVOSIDENIB
     Indication: Acute myeloid leukaemia
     Dosage: 500 MG IN THE EVENING QD
     Route: 048
     Dates: start: 20250304, end: 20250319
  3. ATOVAQUONE [Suspect]
     Active Substance: ATOVAQUONE
     Indication: Opportunistic infection prophylaxis
     Dosage: 750 MG QD, (ALSO REPORTED AS MORNING AND EVENING), STRENGTH: 750 MG/5 ML
     Route: 048
     Dates: start: 20250304, end: 20250319
  4. CANDESARTAN CILEXETIL [Concomitant]
     Active Substance: CANDESARTAN CILEXETIL
     Indication: Hypertension
     Route: 048
     Dates: end: 20250318
  5. VALACYCLOVIR HYDROCHLORIDE [Suspect]
     Active Substance: VALACYCLOVIR HYDROCHLORIDE
     Indication: Opportunistic infection prophylaxis
     Dosage: 1000MG QD (ALSO REPORTED AS 500 MG MORNING AND EVENING) STRENGTH 500MG
     Route: 048
     Dates: start: 20250304, end: 20250319
  6. VIDAZA [Suspect]
     Active Substance: AZACITIDINE
     Indication: Acute myeloid leukaemia
     Dosage: 2 SC INJECTIONS FOR 7 DAYS?D1=D28
     Route: 058
     Dates: start: 20250304, end: 20250310
  7. METFORMIN HYDROCHLORIDE [Concomitant]
     Active Substance: METFORMIN HYDROCHLORIDE
     Indication: Diabetes mellitus
     Route: 048
     Dates: end: 20250318
  8. HYDROCHLOROTHIAZIDE [Concomitant]
     Active Substance: HYDROCHLOROTHIAZIDE
     Indication: Hypertension
     Route: 048
     Dates: end: 20250318

REACTIONS (3)
  - Hypokalaemia [Recovering/Resolving]
  - Electrocardiogram U wave present [Recovering/Resolving]
  - Mixed liver injury [Recovering/Resolving]

NARRATIVE: CASE EVENT DATE: 20250317
